FAERS Safety Report 4415418-0 (Version None)
Quarter: 2004Q2

REPORT INFORMATION
  Report Type: 
  Country: None (occurrence: None)
  Receive Date: 20040630
  Receipt Date: 20030929
  Transmission Date: 20050107
  Serious: Yes (Hospitalization, Other)
  Sender: FDA-Public Use
  Company Number: 2003041381

PATIENT
  Age: 32 Year
  Sex: Female
  Weight: 68.9467 kg

DRUGS (3)
  1. ZOLOFT [Suspect]
     Indication: ANXIETY
     Dosage: 25 MG (DAILY), ORAL
     Route: 048
     Dates: start: 20010101, end: 20030822
  2. ZOLOFT [Suspect]
     Indication: DEPRESSION
     Dosage: 25 MG (DAILY), ORAL
     Route: 048
     Dates: start: 20010101, end: 20030822
  3. ZOLOFT [Suspect]
     Indication: PANIC DISORDER
     Dosage: 25 MG (DAILY), ORAL
     Route: 048
     Dates: start: 20010101, end: 20030822

REACTIONS (10)
  - ANXIETY [None]
  - ASTHENIA [None]
  - BLOOD PRESSURE INCREASED [None]
  - DIARRHOEA [None]
  - DISORIENTATION [None]
  - DIZZINESS [None]
  - FATIGUE [None]
  - RETCHING [None]
  - TREMOR [None]
  - VOMITING [None]
